FAERS Safety Report 16916874 (Version 7)
Quarter: 2020Q1

REPORT INFORMATION
  Report Type: Report from Study
  Country: JP (occurrence: JP)
  Receive Date: 20191015
  Receipt Date: 20200204
  Transmission Date: 20200409
  Serious: Yes (Death, Life-Threatening, Hospitalization, Disabling, Other)
  Sender: FDA-Public Use
  Company Number: JP-ASTELLAS-2019JP022607

PATIENT
  Age: 75 Year
  Sex: Female
  Weight: 46 kg

DRUGS (28)
  1. BISOPROLOL [Concomitant]
     Active Substance: BISOPROLOL
     Indication: ATRIAL FIBRILLATION
     Dosage: 0.625 MG, TWICE DAILY
     Route: 048
     Dates: start: 20190222, end: 20190925
  2. PREDNISOLONE ACETATE. [Concomitant]
     Active Substance: PREDNISOLONE ACETATE
     Indication: ORGANISING PNEUMONIA
     Route: 041
     Dates: start: 20190822, end: 20190826
  3. PREDNISOLONE ACETATE. [Concomitant]
     Active Substance: PREDNISOLONE ACETATE
     Route: 041
     Dates: start: 20190827, end: 20190926
  4. FLUCONAZOLE. [Concomitant]
     Active Substance: FLUCONAZOLE
     Indication: PRODUCT USED FOR UNKNOWN INDICATION
     Dosage: UNK UNK, UNKNOWN FREQ.
     Route: 065
  5. ESOMEPRAZOLE MAGNESIUM. [Concomitant]
     Active Substance: ESOMEPRAZOLE MAGNESIUM
     Indication: PROPHYLAXIS
  6. PREDNISOLONE. [Concomitant]
     Active Substance: PREDNISOLONE
     Route: 048
     Dates: start: 20190706, end: 20190719
  7. CIPROFLOXACIN. [Concomitant]
     Active Substance: CIPROFLOXACIN
     Indication: PNEUMONIA
     Route: 041
     Dates: start: 20190811, end: 20190901
  8. ASP2215 [Suspect]
     Active Substance: GILTERITINIB
     Indication: ACUTE MYELOID LEUKAEMIA REFRACTORY
     Route: 048
     Dates: start: 20190610, end: 20190925
  9. PREDNISOLONE. [Concomitant]
     Active Substance: PREDNISOLONE
     Indication: ORGANISING PNEUMONIA
     Route: 048
     Dates: start: 20190606, end: 20190621
  10. PREDNISOLONE. [Concomitant]
     Active Substance: PREDNISOLONE
     Route: 048
     Dates: start: 20190720, end: 20190821
  11. LEVOFLOXACIN HEMIHYDRATE [Concomitant]
     Active Substance: LEVOFLOXACIN
     Indication: PNEUMONIA
     Route: 048
     Dates: start: 20190606, end: 20190712
  12. VORICONAZOLE. [Concomitant]
     Active Substance: VORICONAZOLE
     Indication: PROPHYLAXIS
     Dosage: 400 MG/DAY, UNKNOWN FREQ.
     Route: 048
  13. OLMESARTAN [Concomitant]
     Active Substance: OLMESARTAN
     Indication: HYPERTENSION
     Dosage: 20 MG/DAY, UNKNOWN FREQ.
     Route: 048
  14. MAGNESIUM OXIDE. [Concomitant]
     Active Substance: MAGNESIUM OXIDE
     Indication: CONSTIPATION
     Dosage: 1980 MG/DAY, UNKNOWN FREQ.
     Route: 048
  15. METFORMIN HYDROCHLORIDE. [Concomitant]
     Active Substance: METFORMIN HYDROCHLORIDE
     Indication: DIABETES MELLITUS
     Route: 048
     Dates: start: 20190520, end: 20190925
  16. PREDNISOLONE. [Concomitant]
     Active Substance: PREDNISOLONE
     Route: 048
     Dates: start: 20190622, end: 20190705
  17. MITIGLINIDE CALCIUM [Concomitant]
     Active Substance: MITIGLINIDE CALCIUM ANHYDROUS
     Indication: DIABETES MELLITUS
     Route: 048
     Dates: start: 20190607, end: 20190925
  18. TAZOBACTAM SODIUM AND PIPERACILLIN SODIUM [Concomitant]
     Active Substance: PIPERACILLIN SODIUM\TAZOBACTAM SODIUM
     Indication: PNEUMONIA
     Dosage: 18 G/DAY, UNKNOWN FREQ.
     Route: 065
     Dates: start: 20190709, end: 20190720
  19. MINOMYCIN [Concomitant]
     Active Substance: MINOCYCLINE HYDROCHLORIDE
     Indication: PNEUMONIA
     Dosage: 200 MG/DAY, UNKNOWN FREQ.
     Route: 065
     Dates: start: 20190808, end: 20190811
  20. SULFAMETHOXAZOLE;TRIMETHOPRIM [Concomitant]
     Active Substance: SULFAMETHOXAZOLE\TRIMETHOPRIM
     Indication: PROPHYLAXIS
     Route: 048
  21. ASP2215 [Suspect]
     Active Substance: GILTERITINIB
     Route: 048
  22. CICLOSPORIN [Concomitant]
     Active Substance: CYCLOSPORINE
     Indication: ORGANISING PNEUMONIA
     Route: 048
     Dates: start: 20190912, end: 20190925
  23. ESOMEPRAZOLE MAGNESIUM. [Concomitant]
     Active Substance: ESOMEPRAZOLE MAGNESIUM
     Indication: ORGANISING PNEUMONIA
     Route: 048
     Dates: start: 20190510, end: 20190925
  24. SITAGLIPTIN PHOSPHATE [Concomitant]
     Active Substance: SITAGLIPTIN PHOSPHATE
     Indication: DIABETES MELLITUS
     Dosage: 50 MG/DAY, UNKNOWN FREQ.
     Route: 048
     Dates: start: 20190520, end: 20190925
  25. PREDNISOLONE. [Concomitant]
     Active Substance: PREDNISOLONE
     Dosage: 15 MG/DAY, UNKNOWN FREQ.
     Route: 048
  26. ITRACONAZOLE. [Concomitant]
     Active Substance: ITRACONAZOLE
     Indication: PNEUMONIA
     Route: 048
     Dates: start: 20190610, end: 20190925
  27. MEROPENEM. [Concomitant]
     Active Substance: MEROPENEM
     Indication: PNEUMONIA
     Dosage: 3 G/DAY, UNKNOWN FREQ.
     Route: 065
     Dates: start: 20190720, end: 20190811
  28. VANCOMYCIN [VANCOMYCIN HYDROCHLORIDE] [Concomitant]
     Active Substance: VANCOMYCIN HYDROCHLORIDE
     Indication: PNEUMONIA
     Dosage: 2 G/DAY, UNKNOWN FREQ.
     Route: 065
     Dates: start: 20190728, end: 20190807

REACTIONS (5)
  - Pulmonary alveolar haemorrhage [Fatal]
  - Altered state of consciousness [Not Recovered/Not Resolved]
  - Pneumonia [Recovering/Resolving]
  - Pyrexia [Not Recovered/Not Resolved]
  - Acute myeloid leukaemia [Fatal]

NARRATIVE: CASE EVENT DATE: 20190709
